FAERS Safety Report 9054156 (Version 3)
Quarter: 2013Q4

REPORT INFORMATION
  Report Type: Spontaneous
  Country: US (occurrence: US)
  Receive Date: 20130208
  Receipt Date: 20131001
  Transmission Date: 20140711
  Serious: Yes (Hospitalization, Disabling)
  Sender: FDA-Public Use
  Company Number: US-BAYER-2013-016408

PATIENT
  Age: 33 Year
  Sex: Female
  Weight: 70.3 kg

DRUGS (11)
  1. YAZ [Suspect]
     Dosage: UNK
     Dates: start: 201203, end: 201205
  2. AMOXICILLIN [Concomitant]
     Dosage: UNK
     Dates: start: 2012
  3. NAPROXEN [Concomitant]
     Dosage: UNK
     Dates: start: 2012
  4. ZETIA [Concomitant]
     Dosage: UNK
     Dates: start: 2012, end: 2012
  5. METOPROLOL [Concomitant]
     Dosage: UNK
     Dates: start: 2012, end: 2012
  6. CRESTOR [Concomitant]
     Dosage: UNK
     Dates: start: 2012
  7. LYRICA [Concomitant]
     Dosage: UNK
     Dates: start: 2012
  8. NYSTATIN [Concomitant]
     Indication: RASH
     Dosage: UNK
     Route: 061
     Dates: start: 20120312
  9. FLUCONAZOLE [Concomitant]
     Dosage: 150 MG, UNK
  10. HYDROCODONE W/ACETAMINOPHEN [Concomitant]
     Dosage: 5-500 MG
  11. RETIN-A [Concomitant]
     Indication: ACNE CYSTIC
     Dosage: 0.05 %, UNK
     Route: 061
     Dates: start: 20120525

REACTIONS (8)
  - Myocardial infarction [None]
  - Off label use [None]
  - Pain [None]
  - Injury [None]
  - General physical health deterioration [None]
  - Anxiety [None]
  - Emotional distress [None]
  - Pain [None]
